FAERS Safety Report 20508988 (Version 3)
Quarter: 2022Q2

REPORT INFORMATION
  Report Type: Report from Study
  Country: AU (occurrence: AU)
  Receive Date: 20220223
  Receipt Date: 20220428
  Transmission Date: 20220721
  Serious: Yes (Hospitalization, Other)
  Sender: FDA-Public Use
  Company Number: AU-GILEAD-2021-0555984

PATIENT
  Age: 37 Year
  Sex: Female

DRUGS (2)
  1. SACITUZUMAB GOVITECAN [Suspect]
     Active Substance: SACITUZUMAB GOVITECAN
     Indication: Triple negative breast cancer
     Dosage: UNK, C5D8 SCHEDULED FOR 11-FEB-2022 BUT WAS DELAYED
     Route: 042
  2. SACITUZUMAB GOVITECAN [Suspect]
     Active Substance: SACITUZUMAB GOVITECAN
     Dosage: C7D8
     Route: 042
     Dates: start: 20220404, end: 20220404

REACTIONS (7)
  - Pyrexia [Recovered/Resolved]
  - Lower limb fracture [Unknown]
  - Diarrhoea [Not Recovered/Not Resolved]
  - Arthralgia [Unknown]
  - Blood glucose increased [Unknown]
  - Wound [Unknown]
  - Chest discomfort [Unknown]

NARRATIVE: CASE EVENT DATE: 20220401
